FAERS Safety Report 7930995-0 (Version None)
Quarter: 2011Q4

REPORT INFORMATION
  Report Type: 
  Country: None (occurrence: None)
  Receive Date: 20111121
  Receipt Date: 20111118
  Transmission Date: 20120403
  Serious: No
  Sender: FDA-Public Use
  Company Number: US-PFIZER INC-2011283404

PATIENT
  Sex: Female
  Weight: 70.295 kg

DRUGS (3)
  1. DETROL LA [Concomitant]
     Indication: URINARY INCONTINENCE
     Dosage: UNK
  2. ACIPHEX [Concomitant]
     Indication: GASTROOESOPHAGEAL REFLUX DISEASE
     Dosage: UNK
  3. NEURONTIN [Suspect]
     Indication: HERPES ZOSTER
     Dosage: 9 TABLETS A DAY
     Route: 048
     Dates: start: 20111028

REACTIONS (1)
  - ECCHYMOSIS [None]
